FAERS Safety Report 25368239 (Version 1)
Quarter: 2025Q2

REPORT INFORMATION
  Report Type: Spontaneous
  Country: NL (occurrence: NL)
  Receive Date: 20250528
  Receipt Date: 20250528
  Transmission Date: 20250717
  Serious: Yes (Other)
  Sender: MYLAN
  Company Number: NL-MYLANLABS-2025M1044141

PATIENT
  Age: 41 Year
  Sex: Male

DRUGS (3)
  1. COLCHICINE [Suspect]
     Active Substance: COLCHICINE
     Indication: Secondary amyloidosis
  2. PREDNISOLONE [Suspect]
     Active Substance: PREDNISOLONE
     Indication: Secondary amyloidosis
  3. AZATHIOPRINE [Suspect]
     Active Substance: AZATHIOPRINE
     Indication: Secondary amyloidosis

REACTIONS (2)
  - Drug ineffective [Unknown]
  - Off label use [Unknown]
